FAERS Safety Report 5946069-4 (Version None)
Quarter: 2008Q4

REPORT INFORMATION
  Report Type: 
  Country: None (occurrence: None)
  Receive Date: 20081110
  Receipt Date: 20081030
  Transmission Date: 20090506
  Serious: No
  Sender: FDA-Public Use
  Company Number: US-ROCHE-564816

PATIENT
  Sex: Female
  Weight: 73.5 kg

DRUGS (4)
  1. ISOTRETINOIN [Suspect]
     Indication: ACNE
     Dosage: THE PATIENT WAS DISPENSED ACCUTANE 40 MG CAPSULE ON 3 JAN 2008.
     Route: 048
     Dates: start: 20080103, end: 20080202
  2. ISOTRETINOIN [Suspect]
     Route: 048
     Dates: start: 20080225, end: 20080225
  3. ISOTRETINOIN [Suspect]
     Dosage: DECREASED DOSE TO 40 MG/DAY SEVERAL DAYS BEFORE 31 MAR 2008 WHEN STOPPED TAKING
     Route: 048
     Dates: end: 20080331
  4. CONTRACEPTIVE [Concomitant]
     Dosage: REPORTED AS 'ORAL CONTRACEPTIVE'
     Route: 048

REACTIONS (2)
  - NO ADVERSE EVENT [None]
  - PREGNANCY [None]
